FAERS Safety Report 4552698-5 (Version None)
Quarter: 2005Q1

REPORT INFORMATION
  Report Type: 
  Country: None (occurrence: None)
  Receive Date: 20050112
  Receipt Date: 20050112
  Transmission Date: 20050727
  Serious: Yes (Hospitalization)
  Sender: FDA-Public Use
  Company Number: None

PATIENT
  Sex: Female
  Weight: 81.6475 kg

DRUGS (22)
  1. VANCOMYCIN [Suspect]
     Indication: POSTOPERATIVE INFECTION
     Dosage: 1GM  EVERY 12 HOURS INTRAVENOUS
     Route: 042
     Dates: start: 20041231, end: 20050101
  2. AZTREONAM [Concomitant]
  3. ZYRTEC [Concomitant]
  4. TRIAMCINOLONE [Concomitant]
  5. BENADRYL [Concomitant]
  6. ALLOPURINOL [Concomitant]
  7. PRILOSEC [Concomitant]
  8. FOSAMAX [Concomitant]
  9. ULTRAM [Concomitant]
  10. ASPIRIN [Concomitant]
  11. COZAAR [Concomitant]
  12. LIPITOR [Concomitant]
  13. SYNTHEROID [Concomitant]
  14. MILK OF MAG [Concomitant]
  15. COMPAZINE [Concomitant]
  16. FLOVENT [Concomitant]
  17. COLACE [Concomitant]
  18. POTASSIUM CHLORIDE [Concomitant]
  19. ISOSORBIDE [Concomitant]
  20. LASIX [Concomitant]
  21. MECLIZINE [Concomitant]
  22. TYLENOL [Concomitant]

REACTIONS (4)
  - BODY TEMPERATURE INCREASED [None]
  - NAUSEA [None]
  - RASH [None]
  - VOMITING [None]
